APPROVED DRUG PRODUCT: AFINITOR
Active Ingredient: EVEROLIMUS
Strength: 7.5MG
Dosage Form/Route: TABLET;ORAL
Application: N022334 | Product #004 | TE Code: AB
Applicant: NOVARTIS PHARMACEUTICALS CORP
Approved: Mar 30, 2012 | RLD: Yes | RS: No | Type: RX

PATENTS:
Patent 9006224 | Expires: Jul 1, 2028
Patent 8410131 | Expires: Nov 1, 2025
Patent 8410131*PED | Expires: May 1, 2026